FAERS Safety Report 14803900 (Version 1)
Quarter: 2018Q2

REPORT INFORMATION
  Report Type: Spontaneous
  Country: JP (occurrence: JP)
  Receive Date: 20180425
  Receipt Date: 20180425
  Transmission Date: 20180711
  Serious: Yes (Life-Threatening, Hospitalization, Other)
  Sender: FDA-Public Use
  Company Number: JP-IPSEN BIOPHARMACEUTICALS, INC.-2018-05584

PATIENT
  Age: 74 Year
  Sex: Male

DRUGS (4)
  1. VP-16 [Suspect]
     Active Substance: ETOPOSIDE
     Indication: SMALL CELL LUNG CANCER
     Route: 048
     Dates: start: 201302
  2. CDDP [Suspect]
     Active Substance: CISPLATIN
     Indication: SMALL CELL LUNG CANCER
     Dates: start: 2012
  3. IRINOTECAN LIPOSOME [Suspect]
     Active Substance: IRINOTECAN
     Indication: SMALL CELL LUNG CANCER
     Dosage: 60 MG/M2
     Route: 065
     Dates: start: 2012
  4. IRINOTECAN LIPOSOME [Suspect]
     Active Substance: IRINOTECAN
     Indication: OFF LABEL USE

REACTIONS (7)
  - Cognitive disorder [Unknown]
  - Neutropenia [Recovering/Resolving]
  - Off label use [Unknown]
  - Leukoencephalopathy [Unknown]
  - Loss of personal independence in daily activities [Unknown]
  - Anaemia [Recovering/Resolving]
  - Inappropriate schedule of drug administration [Unknown]

NARRATIVE: CASE EVENT DATE: 2012
